FAERS Safety Report 6383032-6 (Version None)
Quarter: 2009Q3

REPORT INFORMATION
  Report Type: 
  Country: None (occurrence: None)
  Receive Date: 20090930
  Receipt Date: 20090831
  Transmission Date: 20100115
  Serious: Yes (Other)
  Sender: FDA-Public Use
  Company Number: US-ASTRAZENECA-2009SE14506

PATIENT
  Sex: Female

DRUGS (2)
  1. NEXIUM [Suspect]
     Route: 048
  2. RELPAX [Suspect]
     Indication: MIGRAINE
     Route: 048

REACTIONS (2)
  - ABDOMINAL DISCOMFORT [None]
  - OPTIC NEURITIS [None]
